FAERS Safety Report 23766065 (Version 1)
Quarter: 2024Q2

REPORT INFORMATION
  Report Type: Report from Study
  Country: ES (occurrence: ES)
  Receive Date: 20240421
  Receipt Date: 20240421
  Transmission Date: 20240716
  Serious: Yes (Other)
  Sender: FDA-Public Use
  Company Number: ES-ABBVIE-5725824

PATIENT
  Age: 64 Year
  Sex: Female
  Weight: 75 kg

DRUGS (13)
  1. UPADACITINIB [Suspect]
     Active Substance: UPADACITINIB
     Indication: Rheumatoid arthritis
     Route: 048
     Dates: start: 20210812
  2. IRBESARTAN [Concomitant]
     Active Substance: IRBESARTAN
     Indication: Hypertension
     Route: 048
     Dates: start: 20170427
  3. ROSUVASTATIN [Concomitant]
     Active Substance: ROSUVASTATIN
     Indication: Dyslipidaemia
     Route: 048
     Dates: start: 20120907
  4. SARS-CoV-2 vaccine [Concomitant]
     Indication: Prophylaxis
     Dates: start: 20211125
  5. LEVOTHYROXINE [Concomitant]
     Active Substance: LEVOTHYROXINE\LEVOTHYROXINE SODIUM
     Indication: Hypothyroidism
     Route: 048
     Dates: start: 20210209
  6. EZETIMIBE [Concomitant]
     Active Substance: EZETIMIBE
     Indication: Dyslipidaemia
     Route: 048
     Dates: start: 20220929
  7. STREPTOCOCCUS PNEUMONIAE [Concomitant]
     Indication: Prophylaxis
     Dates: start: 20181120, end: 20181120
  8. STREPTOCOCCUS PNEUMONIAE [Concomitant]
     Indication: Prophylaxis
     Dates: start: 20231002
  9. PREDNISONE [Concomitant]
     Active Substance: PREDNISONE
     Indication: Rheumatoid arthritis
     Dosage: LAST ADMIN DATE: DEC 2016
     Route: 048
     Dates: start: 20161212
  10. PREDNISONE [Concomitant]
     Active Substance: PREDNISONE
     Indication: Rheumatoid arthritis
     Dosage: FIRST ADMIN DATE: DEC 2016
     Dates: end: 202203
  11. PREDNISONE [Concomitant]
     Active Substance: PREDNISONE
     Indication: Rheumatoid arthritis
  12. INFLUENZA VIRUS VACCINE [Concomitant]
     Active Substance: INFLUENZA VIRUS VACCINE
     Indication: Prophylaxis
     Dates: start: 20211115, end: 20211115
  13. INFLUENZA VIRUS VACCINE [Concomitant]
     Active Substance: INFLUENZA VIRUS VACCINE
     Indication: Prophylaxis
     Dates: start: 20221018

REACTIONS (1)
  - Skin cancer [Recovered/Resolved with Sequelae]

NARRATIVE: CASE EVENT DATE: 20230601
